FAERS Safety Report 12939751 (Version 1)
Quarter: 2016Q4

REPORT INFORMATION
  Report Type: Spontaneous
  Country: US (occurrence: US)
  Receive Date: 20161115
  Receipt Date: 20161115
  Transmission Date: 20170207
  Serious: No
  Sender: FDA-Public Use
  Company Number: None

PATIENT

DRUGS (1)
  1. POTASSIUM CHLORIDE 20MEQ PER 100ML [Suspect]
     Active Substance: POTASSIUM CHLORIDE
     Dosage: POTASSIUM CHLORIDE - INJECTION - IV BAG - 100 ML

REACTIONS (1)
  - Product label confusion [None]
